FAERS Safety Report 21775142 (Version 1)
Quarter: 2022Q4

REPORT INFORMATION
  Report Type: Spontaneous
  Country: US (occurrence: US)
  Receive Date: 20221225
  Receipt Date: 20221225
  Transmission Date: 20230113
  Serious: Yes (Death)
  Sender: FDA-Public Use
  Company Number: US-MACLEODS PHARMA EU LTD-MAC2022038878

PATIENT

DRUGS (1)
  1. SILDENAFIL [Suspect]
     Active Substance: SILDENAFIL
     Indication: Product used for unknown indication
     Dosage: UNK
     Route: 065

REACTIONS (10)
  - Toxicity to various agents [Fatal]
  - Accident [Fatal]
  - Pulmonary oedema [Fatal]
  - Brain oedema [Fatal]
  - Ganglioneuroma [Fatal]
  - Nephrosclerosis [Fatal]
  - Congestive cardiomyopathy [Fatal]
  - Unresponsive to stimuli [Unknown]
  - Fall [Unknown]
  - Hypotension [Unknown]
